FAERS Safety Report 9351600 (Version 1)
Quarter: 2013Q2

REPORT INFORMATION
  Report Type: Report from Study
  Country: GR (occurrence: GR)
  Receive Date: 20130617
  Receipt Date: 20130617
  Transmission Date: 20140414
  Serious: Yes (Death)
  Sender: FDA-Public Use
  Company Number: GR-SANOFI-AVENTIS-2013SA060583

PATIENT
  Sex: 0

DRUGS (2)
  1. DOCETAXEL [Suspect]
     Indication: LUNG ADENOCARCINOMA
     Route: 065
  2. BEVACIZUMAB [Suspect]
     Indication: LUNG ADENOCARCINOMA
     Route: 065

REACTIONS (1)
  - Pulmonary embolism [Fatal]
